FAERS Safety Report 7579753-X (Version None)
Quarter: 2011Q2

REPORT INFORMATION
  Report Type: 
  Country: None (occurrence: None)
  Receive Date: 20110629
  Receipt Date: 20110624
  Transmission Date: 20111010
  Serious: Yes (Other)
  Sender: FDA-Public Use
  Company Number: US-AMGEN-USASP2011031838

PATIENT
  Age: 58 Year
  Sex: Female

DRUGS (1)
  1. NPLATE [Suspect]
     Indication: PRODUCT USED FOR UNKNOWN INDICATION
     Dosage: 1 A?G/KG, UNK
     Dates: start: 20110501, end: 20110501

REACTIONS (2)
  - BIOPSY BONE MARROW ABNORMAL [None]
  - DRUG INEFFECTIVE [None]
